FAERS Safety Report 17924978 (Version 1)
Quarter: 2020Q2

REPORT INFORMATION
  Report Type: Spontaneous
  Country: HK (occurrence: HK)
  Receive Date: 20200622
  Receipt Date: 20200622
  Transmission Date: 20200714
  Serious: Yes (Hospitalization)
  Sender: FDA-Public Use
  Company Number: HK-NXDC-GLE-0028-2020

PATIENT

DRUGS (1)
  1. GLIOLAN [Suspect]
     Active Substance: AMINOLEVULINIC ACID HYDROCHLORIDE
     Indication: PHOTODYNAMIC DIAGNOSTIC PROCEDURE
     Route: 048

REACTIONS (2)
  - Hypotension [Unknown]
  - Metabolic acidosis [Recovered/Resolved]
